FAERS Safety Report 25396562 (Version 3)
Quarter: 2025Q4

REPORT INFORMATION
  Report Type: Report from Study
  Country: US (occurrence: US)
  Receive Date: 20250604
  Receipt Date: 20251229
  Transmission Date: 20260118
  Serious: Yes (Other)
  Sender: ABBVIE
  Company Number: US-ABBVIE-6310981

PATIENT
  Age: 70 Year
  Sex: Male

DRUGS (3)
  1. RINVOQ [Suspect]
     Active Substance: UPADACITINIB
     Indication: Rheumatoid arthritis
     Dosage: FORM STRENGTH: 15MG?MISSED 7-10 DOSES
     Route: 048
     Dates: start: 20250404, end: 2025
  2. RINVOQ [Suspect]
     Active Substance: UPADACITINIB
     Indication: Rheumatoid arthritis
     Dosage: FORM STRENGTH: 15MG, TOOK RINVOQ 15 MG- 1 TABLET BY MOUTH EVERY OTHER DAY
     Route: 048
     Dates: start: 2025
  3. RINVOQ [Suspect]
     Active Substance: UPADACITINIB
     Indication: Rheumatoid arthritis
     Dosage: FORM STRENGTH: 15MG
     Route: 048

REACTIONS (9)
  - Hip fracture [Unknown]
  - Nasopharyngitis [Not Recovered/Not Resolved]
  - Musculoskeletal stiffness [Unknown]
  - Fall [Unknown]
  - Inappropriate schedule of product administration [Unknown]
  - Unevaluable event [Unknown]
  - Multiple allergies [Unknown]
  - Sinus disorder [Unknown]
  - Peripheral swelling [Recovered/Resolved]

NARRATIVE: CASE EVENT DATE: 20250101
